FAERS Safety Report 9032641 (Version 3)
Quarter: 2013Q2

REPORT INFORMATION
  Report Type: Spontaneous
  Country: FR (occurrence: FR)
  Receive Date: 20130125
  Receipt Date: 20130517
  Transmission Date: 20140414
  Serious: Yes (Death, Hospitalization)
  Sender: FDA-Public Use
  Company Number: CHPA2013FR001636

PATIENT
  Age: 49 Year
  Sex: Male

DRUGS (15)
  1. VOLTARENE EMULGEL [Suspect]
     Dosage: 1 DF, BID
     Route: 003
     Dates: start: 20120924, end: 20121001
  2. CARBOPLATIN [Suspect]
     Dosage: UNK
     Route: 042
     Dates: start: 20120623, end: 20120903
  3. CORTANCYL [Suspect]
     Dosage: UNK
     Route: 048
     Dates: start: 20120611, end: 20121001
  4. OXYCONTIN [Suspect]
     Dosage: 1 DF, BID
     Route: 042
     Dates: start: 20120611, end: 20121001
  5. OXYNORM [Suspect]
     Dosage: 1 DF, Q4H
     Route: 042
     Dates: start: 20120611, end: 20121007
  6. DOLIPRANE [Suspect]
     Dosage: UNK
     Route: 048
     Dates: start: 20120611, end: 20121001
  7. INEXIUM//ESOMEPRAZOLE MAGNESIUM [Suspect]
     Dosage: 40 MG, QD
     Route: 048
  8. TENORMINE [Suspect]
     Dosage: 50 MG, BID
     Route: 048
     Dates: start: 20120611, end: 20121001
  9. PERFALGAN [Concomitant]
     Dosage: UNK
     Route: 042
     Dates: start: 20121001
  10. EUPANTOL [Concomitant]
     Dosage: 40 MG, UNK
     Route: 042
  11. ARIXTRA [Concomitant]
     Dosage: 7.5 MG, QD
     Route: 058
  12. LEXOMIL [Concomitant]
     Dosage: 0.25 DF, QD
     Route: 048
  13. DIFFU-K [Concomitant]
     Dosage: UNK
     Route: 048
  14. ALIMTA [Concomitant]
     Dosage: UNK
     Route: 042
     Dates: start: 20120723, end: 20120903
  15. HEMIGOXINE NATIVELLE [Concomitant]
     Dosage: UNK
     Route: 048
     Dates: start: 20120701, end: 20121001

REACTIONS (3)
  - Malignant neoplasm progression [Fatal]
  - Pancreatitis acute [Fatal]
  - Abdominal pain upper [Fatal]
